FAERS Safety Report 8602907-8 (Version None)
Quarter: 2012Q3

REPORT INFORMATION
  Report Type: 
  Country: None (occurrence: None)
  Receive Date: 20120817
  Receipt Date: 20120807
  Transmission Date: 20120928
  Serious: Yes (Hospitalization)
  Sender: FDA-Public Use
  Company Number: FR-GLAXOSMITHKLINE-B0821017A

PATIENT
  Sex: Female

DRUGS (4)
  1. METHYLPREDNISOLONE [Suspect]
     Indication: PREMEDICATION
     Dosage: 80MG SINGLE DOSE
     Route: 042
     Dates: start: 20120711, end: 20120711
  2. KYTRIL [Concomitant]
     Indication: PREMEDICATION
     Dosage: 2MG SINGLE DOSE
     Route: 048
     Dates: start: 20120711, end: 20120711
  3. ZANTAC [Suspect]
     Indication: PREMEDICATION
     Dosage: 50MG SINGLE DOSE
     Route: 042
     Dates: start: 20120711, end: 20120711
  4. POLARAMINE [Concomitant]
     Indication: PREMEDICATION
     Dosage: 5MG SINGLE DOSE
     Route: 042
     Dates: start: 20120711, end: 20120711

REACTIONS (9)
  - ERYTHEMA [None]
  - LIP OEDEMA [None]
  - OXYGEN SATURATION DECREASED [None]
  - ANAPHYLACTOID REACTION [None]
  - PARAESTHESIA [None]
  - HEADACHE [None]
  - TONGUE OEDEMA [None]
  - HYPERTENSION [None]
  - SUFFOCATION FEELING [None]
